FAERS Safety Report 14944391 (Version 1)
Quarter: 2018Q2

REPORT INFORMATION
  Report Type: Spontaneous
  Country: US (occurrence: US)
  Receive Date: 20180528
  Receipt Date: 20180528
  Transmission Date: 20180711
  Serious: No
  Sender: FDA-Public Use
  Company Number: US-JNJFOC-20180511993

PATIENT
  Age: 46 Year
  Sex: Female
  Weight: 56.25 kg

DRUGS (3)
  1. BENADRYL ALLERGY [Suspect]
     Active Substance: DIPHENHYDRAMINE HYDROCHLORIDE
     Indication: MULTIPLE ALLERGIES
     Route: 065
  2. ZYRTEC [Suspect]
     Active Substance: CETIRIZINE HYDROCHLORIDE
     Route: 065
  3. ZYRTEC [Suspect]
     Active Substance: CETIRIZINE HYDROCHLORIDE
     Indication: MULTIPLE ALLERGIES
     Route: 065

REACTIONS (2)
  - Fatigue [Unknown]
  - Somnolence [Recovered/Resolved]
